FAERS Safety Report 7381477-9 (Version None)
Quarter: 2011Q1

REPORT INFORMATION
  Report Type: 
  Country: None (occurrence: None)
  Receive Date: 20110329
  Receipt Date: 20110315
  Transmission Date: 20110831
  Serious: Yes (Other)
  Sender: FDA-Public Use
  Company Number: PHEH2007US11602

PATIENT
  Sex: Male

DRUGS (41)
  1. CASODEX [Concomitant]
     Dosage: UNK
     Dates: end: 20060101
  2. KETOCONAZOLE [Concomitant]
     Dosage: UNK
     Dates: start: 20060101, end: 20070101
  3. DURAGESIC-50 [Concomitant]
  4. TAXOTERE [Concomitant]
  5. CLONAZEPAM [Concomitant]
  6. MS CONTIN [Concomitant]
  7. METOPROLOL TARTRATE [Concomitant]
  8. PEPCID [Concomitant]
  9. TRAZODONE [Concomitant]
  10. GABAPENTIN [Concomitant]
  11. HYDROXYZINE [Concomitant]
  12. SENNA [Concomitant]
  13. POTASSIUM CITRATE [Concomitant]
  14. TRIAMZOLAM [Concomitant]
  15. GLIPIZIDE [Concomitant]
  16. EPOGEN [Concomitant]
  17. CHLORHEXIDINE GLUCONATE [Concomitant]
  18. LORAZEPAM [Concomitant]
  19. PREMARIN [Concomitant]
     Dosage: UNK
     Dates: start: 20070101
  20. OXYCODONE HCL AND ACETAMINOPHEN [Concomitant]
  21. CITALOPRAM HYDROBROMIDE [Concomitant]
  22. METFORMIN HCL [Concomitant]
  23. ZANTAC [Concomitant]
  24. PERIDEX [Concomitant]
  25. NIZORAL [Concomitant]
  26. SEPTRA [Concomitant]
  27. VICODIN [Concomitant]
  28. FLONASE [Concomitant]
  29. SIMVASTATIN [Concomitant]
  30. ANTIBIOTICS [Concomitant]
  31. MARINOL [Concomitant]
  32. PROCRIT [Concomitant]
  33. FLOMAX [Concomitant]
  34. PRILOSEC [Concomitant]
  35. PERCOCET [Concomitant]
  36. IBUPROFEN [Concomitant]
  37. ZOMETA [Suspect]
     Indication: PROSTATE CANCER
     Dosage: 4 MG Q4W
     Route: 042
     Dates: start: 20020101, end: 20070101
  38. URISED [Concomitant]
  39. BEXTRA [Concomitant]
  40. ZOLADEX [Concomitant]
  41. ASPIRIN [Concomitant]

REACTIONS (65)
  - INTESTINAL FUNCTIONAL DISORDER [None]
  - GINGIVITIS [None]
  - PAIN IN JAW [None]
  - INSOMNIA [None]
  - BREAST TENDERNESS [None]
  - INFLAMMATION [None]
  - BLADDER HYPERTROPHY [None]
  - GINGIVAL OEDEMA [None]
  - PELVIC PAIN [None]
  - GINGIVAL INFECTION [None]
  - GINGIVAL PAIN [None]
  - TOOTH ABSCESS [None]
  - GINGIVAL SWELLING [None]
  - PURULENCE [None]
  - CONSTIPATION [None]
  - PAIN [None]
  - ANHEDONIA [None]
  - ADRENAL NEOPLASM [None]
  - LUNG NEOPLASM [None]
  - NAUSEA [None]
  - CHILLS [None]
  - HOT FLUSH [None]
  - SEBORRHOEIC KERATOSIS [None]
  - DIVERTICULUM [None]
  - CALCULUS BLADDER [None]
  - NOCTURIA [None]
  - COLITIS [None]
  - ANXIETY [None]
  - PROSTATE CANCER METASTATIC [None]
  - BILIARY CYST [None]
  - ORAL DISORDER [None]
  - BONE DENSITY DECREASED [None]
  - DYSURIA [None]
  - INFECTION [None]
  - GINGIVAL EROSION [None]
  - PROSTATIC SPECIFIC ANTIGEN INCREASED [None]
  - OSTEONECROSIS OF JAW [None]
  - NEPHROLITHIASIS [None]
  - BLOOD URINE PRESENT [None]
  - MENTAL DISORDER [None]
  - PERIODONTITIS [None]
  - SWELLING [None]
  - DENTAL DISCOMFORT [None]
  - FATIGUE [None]
  - ANAEMIA [None]
  - OESOPHAGEAL DISORDER [None]
  - BONE DISORDER [None]
  - GINGIVAL ERYTHEMA [None]
  - HAEMATURIA [None]
  - ABDOMINAL PAIN [None]
  - INJURY [None]
  - TOOTH FRACTURE [None]
  - OPEN WOUND [None]
  - CONCOMITANT DISEASE PROGRESSION [None]
  - DYSPNOEA [None]
  - NIGHT SWEATS [None]
  - MUSCULOSKELETAL PAIN [None]
  - GYNAECOMASTIA [None]
  - GAIT DISTURBANCE [None]
  - GINGIVAL BLEEDING [None]
  - NECK PAIN [None]
  - BONE PAIN [None]
  - BLOOD TESTOSTERONE DECREASED [None]
  - DYSPHAGIA [None]
  - MENISCUS LESION [None]
